FAERS Safety Report 16368277 (Version 1)
Quarter: 2019Q2

REPORT INFORMATION
  Report Type: Spontaneous
  Country: US (occurrence: US)
  Receive Date: 20190529
  Receipt Date: 20190529
  Transmission Date: 20190711
  Serious: No
  Sender: FDA-Public Use
  Company Number: US-COVIS PHARMA B.V.-2019COV00127

PATIENT
  Age: 87 Year
  Sex: Female
  Weight: 68.03 kg

DRUGS (4)
  1. UNSPECIFIED CHOLESTEROL MEDICATION [Concomitant]
     Active Substance: UNSPECIFIED INGREDIENT
  2. OMNARIS [Suspect]
     Active Substance: CICLESONIDE
     Indication: MULTIPLE ALLERGIES
     Dosage: 100 ?G, 1X/DAY
     Route: 045
     Dates: start: 2009
  3. OMNARIS [Suspect]
     Active Substance: CICLESONIDE
     Dosage: 100 ?G, 1X/DAY
     Route: 045
     Dates: start: 201904, end: 201904
  4. UNSPECIFIED BLOOD PRESSURE MEDICATION [Concomitant]
     Active Substance: UNSPECIFIED INGREDIENT

REACTIONS (4)
  - Lethargy [Recovered/Resolved]
  - Incorrect dose administered [Recovered/Resolved]
  - Drug ineffective [Not Recovered/Not Resolved]
  - Headache [Recovered/Resolved]

NARRATIVE: CASE EVENT DATE: 201904
